FAERS Safety Report 4422914-9 (Version None)
Quarter: 2004Q3

REPORT INFORMATION
  Report Type: 
  Country: None (occurrence: None)
  Receive Date: 20040804
  Receipt Date: 20040714
  Transmission Date: 20050211
  Serious: Yes (Hospitalization, Other)
  Sender: FDA-Public Use
  Company Number: USA040772700

PATIENT
  Age: 38 Year
  Sex: Male

DRUGS (1)
  1. HUMULIN U [Suspect]
     Indication: DIABETES MELLITUS

REACTIONS (3)
  - HYPOGLYCAEMIA [None]
  - MEDICATION ERROR [None]
  - OVERDOSE [None]
